FAERS Safety Report 18565123 (Version 1)
Quarter: 2020Q4

REPORT INFORMATION
  Report Type: Spontaneous
  Country: US (occurrence: US)
  Receive Date: 20201201
  Receipt Date: 20201201
  Transmission Date: 20210114
  Serious: Yes (Other)
  Sender: FDA-Public Use
  Company Number: US-MYLANLABS-2020M1098073

PATIENT
  Age: 49 Year
  Sex: Male

DRUGS (3)
  1. BUPRENORPHINE. [Suspect]
     Active Substance: BUPRENORPHINE
     Dosage: 0.5 UNK
     Route: 065
  2. BUPRENORPHINE. [Suspect]
     Active Substance: BUPRENORPHINE
     Indication: SUICIDAL IDEATION
     Dosage: 8 MILLIGRAM, QD
     Route: 065
  3. CELECOXIB. [Suspect]
     Active Substance: CELECOXIB
     Indication: BACK PAIN
     Dosage: UNK
     Route: 065

REACTIONS (5)
  - Urinary retention [Unknown]
  - Drug ineffective [Unknown]
  - Nausea [Unknown]
  - Off label use [Unknown]
  - Dysphoria [Unknown]
